FAERS Safety Report 23559040 (Version 1)
Quarter: 2024Q1

REPORT INFORMATION
  Report Type: Spontaneous
  Country: US (occurrence: None)
  Receive Date: 20240222
  Receipt Date: 20240222
  Transmission Date: 20240409
  Serious: Yes (Hospitalization)
  Sender: FDA-Public Use
  Company Number: None

PATIENT
  Age: 45 Year
  Sex: Female
  Weight: 135 kg

DRUGS (3)
  1. LITHIUM [Suspect]
     Active Substance: LITHIUM
  2. RISPERIDONE [Concomitant]
     Active Substance: RISPERIDONE
  3. HALDOL [Concomitant]
     Active Substance: HALOPERIDOL

REACTIONS (1)
  - Hypothermia [None]

NARRATIVE: CASE EVENT DATE: 20240217
